FAERS Safety Report 9082290 (Version 1)
Quarter: 2013Q1

REPORT INFORMATION
  Report Type: Spontaneous
  Country: US (occurrence: US)
  Receive Date: 20130131
  Receipt Date: 20130131
  Transmission Date: 20140127
  Serious: No
  Sender: FDA-Public Use
  Company Number: US-009507513-1301USA011830

PATIENT
  Sex: Female

DRUGS (4)
  1. SAPHRIS [Suspect]
     Indication: MANIA
     Route: 060
  2. KLONOPIN [Concomitant]
  3. SEROQUEL XR [Concomitant]
  4. TOPAMAX [Concomitant]

REACTIONS (1)
  - Akathisia [Not Recovered/Not Resolved]
